FAERS Safety Report 15728971 (Version 1)
Quarter: 2018Q4

REPORT INFORMATION
  Report Type: Spontaneous
  Country: US (occurrence: US)
  Receive Date: 20181217
  Receipt Date: 20181217
  Transmission Date: 20190205
  Serious: Yes (Hospitalization)
  Sender: FDA-Public Use
  Company Number: US-PFIZER INC-2018512792

PATIENT
  Age: 66 Year
  Sex: Female

DRUGS (1)
  1. GENOTROPIN MQ [Suspect]
     Active Substance: SOMATROPIN
     Dosage: 0.2 MG, DAILY

REACTIONS (10)
  - Nausea [Unknown]
  - Chest pain [Unknown]
  - Dry skin [Unknown]
  - Fatigue [Unknown]
  - Malaise [Unknown]
  - Glomerular filtration rate decreased [Unknown]
  - Blood corticotrophin abnormal [Unknown]
  - Blood thyroid stimulating hormone decreased [Unknown]
  - Adrenocortical insufficiency acute [Unknown]
  - Carbon dioxide increased [Unknown]

NARRATIVE: CASE EVENT DATE: 20180510
